FAERS Safety Report 24282898 (Version 2)
Quarter: 2024Q3

REPORT INFORMATION
  Report Type: Other
  Country: US (occurrence: US)
  Receive Date: 20240904
  Receipt Date: 20240912
  Transmission Date: 20241017
  Serious: Yes (Other)
  Sender: MADRIGAL PHARMACEUTICALS
  Company Number: US-MADRIGAL PHARMACEUTICALS, INC-2024REZ1325

PATIENT

DRUGS (18)
  1. REZDIFFRA [Suspect]
     Active Substance: RESMETIROM
     Indication: Non-alcoholic steatohepatitis
     Dosage: 80 MILLIGRAM, QD
     Route: 048
     Dates: start: 20240705, end: 20240807
  2. LOMOTIL [Concomitant]
     Active Substance: ATROPINE SULFATE\DIPHENOXYLATE HYDROCHLORIDE
  3. OMEPRAZOLE [Concomitant]
     Active Substance: OMEPRAZOLE
  4. FUROSEMIDE [Concomitant]
     Active Substance: FUROSEMIDE
  5. LAMOTRIGINE [Concomitant]
     Active Substance: LAMOTRIGINE
  6. LEVOTHYROXINE [Concomitant]
     Active Substance: LEVOTHYROXINE\LEVOTHYROXINE SODIUM
     Dosage: 200 MICROGRAM
  7. MELATONIN [Concomitant]
     Active Substance: MELATONIN
  8. METFORMIN [Concomitant]
     Active Substance: METFORMIN HYDROCHLORIDE
     Dosage: 500 MILLIGRAM
  9. NOVOLOG [Concomitant]
     Active Substance: INSULIN ASPART
     Dosage: 150 INTERNATIONAL UNITS VIA PUMP
  10. MUPIROCIN [Concomitant]
     Active Substance: MUPIROCIN
     Route: 061
  11. ONDANSETRON [Concomitant]
     Active Substance: ONDANSETRON
  12. POTASSIUM [Concomitant]
     Active Substance: POTASSIUM
  13. PREGABALIN [Concomitant]
     Active Substance: PREGABALIN
  14. ROPINIROLE [Concomitant]
     Active Substance: ROPINIROLE
  15. ROSUVASTATIN [Concomitant]
     Active Substance: ROSUVASTATIN\ROSUVASTATIN CALCIUM
     Dosage: 20 MILLIGRAM
  16. SUCRALFATE [Concomitant]
     Active Substance: SUCRALFATE
  17. ZOLPIDEM [Concomitant]
     Active Substance: ZOLPIDEM TARTRATE
  18. BUDESONIDE [Concomitant]
     Active Substance: BUDESONIDE
     Dosage: TAPER

REACTIONS (7)
  - Syncope [Unknown]
  - Confusional state [Unknown]
  - Heart rate decreased [Unknown]
  - Swollen tongue [Unknown]
  - Abnormal faeces [Unknown]
  - Dizziness [Unknown]
  - Pruritus [Unknown]

NARRATIVE: CASE EVENT DATE: 20240101
